FAERS Safety Report 20997285 (Version 1)
Quarter: 2022Q2

REPORT INFORMATION
  Report Type: Report from Study
  Country: AU (occurrence: None)
  Receive Date: 20220623
  Receipt Date: 20220623
  Transmission Date: 20220721
  Serious: Yes (Hospitalization)
  Sender: FDA-Public Use
  Company Number: AU-Unichem Pharmaceuticals (USA) Inc-UCM202206-000555

PATIENT

DRUGS (1)
  1. CLONIDINE HYDROCHLORIDE [Suspect]
     Active Substance: CLONIDINE HYDROCHLORIDE
     Indication: Venomous sting
     Dosage: 2 MCG/KG TWO TITRATED DOSES

REACTIONS (3)
  - Hypotension [Unknown]
  - Acute pulmonary oedema [Unknown]
  - Stress cardiomyopathy [Unknown]
